FAERS Safety Report 6939273-X (Version None)
Quarter: 2010Q3

REPORT INFORMATION
  Report Type: 
  Country: None (occurrence: None)
  Receive Date: 20100824
  Receipt Date: 20100813
  Transmission Date: 20110219
  Serious: Yes (Hospitalization, Other)
  Sender: FDA-Public Use
  Company Number: US-CELGENEUS-163-21880-10070552

PATIENT
  Sex: Male
  Weight: 75.455 kg

DRUGS (36)
  1. REVLIMID [Suspect]
     Indication: MULTIPLE MYELOMA
     Route: 048
     Dates: start: 20090401
  2. REVLIMID [Suspect]
     Route: 048
     Dates: start: 20100301
  3. REVLIMID [Suspect]
     Route: 048
     Dates: start: 20100401, end: 20100601
  4. REVLIMID [Suspect]
     Route: 048
     Dates: start: 20100701
  5. VELCADE [Suspect]
     Indication: MULTIPLE MYELOMA
     Route: 051
     Dates: start: 20081207, end: 20100618
  6. VELCADE [Suspect]
     Route: 051
     Dates: start: 20100528
  7. VELCADE [Suspect]
     Route: 051
     Dates: start: 20100601
  8. VELCADE [Suspect]
     Route: 051
     Dates: start: 20100604
  9. VFEND [Concomitant]
     Indication: ANTIFUNGAL PROPHYLAXIS
     Route: 048
     Dates: start: 20100504
  10. FLOMAX [Concomitant]
     Indication: BENIGN PROSTATIC HYPERPLASIA
     Route: 048
     Dates: start: 20090101
  11. CELLCEPT [Concomitant]
     Indication: PRODUCT USED FOR UNKNOWN INDICATION
     Route: 048
     Dates: start: 20100504
  12. ZOMETA [Concomitant]
     Indication: PRODUCT USED FOR UNKNOWN INDICATION
     Route: 040
     Dates: start: 20100810
  13. ZOMETA [Concomitant]
     Route: 040
     Dates: start: 20100528
  14. FLORINEF [Concomitant]
     Indication: PRODUCT USED FOR UNKNOWN INDICATION
     Route: 065
     Dates: start: 20100706
  15. BIAXIN [Concomitant]
     Indication: PRODUCT USED FOR UNKNOWN INDICATION
     Route: 065
     Dates: start: 20100706
  16. DEXAMETHASONE [Concomitant]
     Indication: PRODUCT USED FOR UNKNOWN INDICATION
     Route: 048
     Dates: start: 20100706
  17. ZIAC [Concomitant]
     Indication: BLOOD PRESSURE
     Route: 065
     Dates: end: 20100614
  18. ATENOLOL [Concomitant]
     Indication: PRODUCT USED FOR UNKNOWN INDICATION
     Route: 048
     Dates: start: 20100614
  19. TACROLIMUS [Concomitant]
     Indication: PRODUCT USED FOR UNKNOWN INDICATION
     Route: 048
  20. MAGNESIUM WITH POTASSIUM [Concomitant]
     Indication: SUPPLEMENTATION THERAPY
     Dosage: 4 GR MAG/20 ME POT W 1 LITER FLUID
     Route: 051
  21. LIDEX [Concomitant]
     Indication: PRODUCT USED FOR UNKNOWN INDICATION
     Route: 061
  22. COMPAZINE [Concomitant]
     Indication: PRODUCT USED FOR UNKNOWN INDICATION
     Route: 065
  23. ZOFRAN [Concomitant]
     Indication: NAUSEA
     Route: 048
     Dates: start: 20100528
  24. ZOFRAN [Concomitant]
     Route: 048
     Dates: start: 20100601
  25. ZOFRAN [Concomitant]
     Route: 048
     Dates: start: 20100604
  26. NORMAL SALINE [Concomitant]
     Indication: PRODUCT USED FOR UNKNOWN INDICATION
     Dosage: 2000 CC
     Route: 051
     Dates: start: 20100607
  27. TEMAZEPAM [Concomitant]
     Indication: INSOMNIA
     Route: 065
  28. OXYCODONE [Concomitant]
     Indication: PAIN
     Dosage: 5/325MG
     Route: 065
  29. SENNA [Concomitant]
     Indication: CONSTIPATION
     Route: 065
  30. BISUP/HCTZ [Concomitant]
     Indication: HYPERTENSION
     Route: 065
  31. ACYCLOVIR [Concomitant]
     Indication: ANTIVIRAL PROPHYLAXIS
     Route: 065
  32. PRILOSEC [Concomitant]
     Route: 065
  33. URSODIOL [Concomitant]
     Indication: PROPHYLAXIS
     Route: 048
  34. ASPIRIN [Concomitant]
     Indication: THROMBOSIS PROPHYLAXIS
     Route: 065
  35. BACTRIM [Concomitant]
     Indication: INFECTION PROPHYLAXIS
     Route: 065
  36. MAGNESIUM [Concomitant]
     Indication: SUPPLEMENTATION THERAPY
     Route: 065

REACTIONS (4)
  - DECREASED APPETITE [None]
  - ILEUS PARALYTIC [None]
  - NEUROPATHY PERIPHERAL [None]
  - ORTHOSTATIC HYPOTENSION [None]
